FAERS Safety Report 21615228 (Version 5)
Quarter: 2022Q4

REPORT INFORMATION
  Report Type: Spontaneous
  Country: US (occurrence: US)
  Receive Date: 20221118
  Receipt Date: 20221216
  Transmission Date: 20230113
  Serious: No
  Sender: FDA-Public Use
  Company Number: US-UNITED THERAPEUTICS-UNT-2022-027620

PATIENT
  Sex: Female
  Weight: 102 kg

DRUGS (4)
  1. REMODULIN [Suspect]
     Active Substance: TREPROSTINIL
     Indication: Pulmonary arterial hypertension
     Dosage: 0.010 ?G/KG (PRE-FILLED WITH 2.4ML PER CASSETTE AT A RATE OF 24 MCL/HOUR), CONTINUING
     Route: 058
     Dates: start: 20221107
  2. REMODULIN [Suspect]
     Active Substance: TREPROSTINIL
     Dosage: UNK, CONTINUING
     Route: 058
     Dates: start: 202211
  3. AMBRISENTAN [Concomitant]
     Active Substance: AMBRISENTAN
     Indication: Product used for unknown indication
     Dosage: UNK
     Route: 065
  4. TADALAFIL [Concomitant]
     Active Substance: TADALAFIL
     Indication: Product used for unknown indication
     Dosage: UNK
     Route: 065

REACTIONS (15)
  - Infusion site pain [Unknown]
  - Infusion site erythema [Unknown]
  - Somnolence [Unknown]
  - Infusion site swelling [Unknown]
  - Headache [Unknown]
  - Skin mass [Unknown]
  - Head discomfort [Unknown]
  - Rhinorrhoea [Unknown]
  - Chills [Unknown]
  - Pain in extremity [Unknown]
  - Sneezing [Unknown]
  - Cough [Unknown]
  - Device failure [Unknown]
  - Infusion site warmth [Unknown]
  - Infusion site pruritus [Unknown]

NARRATIVE: CASE EVENT DATE: 20220101
